FAERS Safety Report 17908634 (Version 1)
Quarter: 2020Q2

REPORT INFORMATION
  Report Type: Spontaneous
  Country: HU (occurrence: HU)
  Receive Date: 20200617
  Receipt Date: 20200617
  Transmission Date: 20200714
  Serious: Yes (Other)
  Sender: FDA-Public Use
  Company Number: HU-GLAXOSMITHKLINE-HU2020057520

PATIENT
  Age: 66 Year
  Sex: Female

DRUGS (3)
  1. TEGRETOL XR [Suspect]
     Active Substance: CARBAMAZEPINE
     Indication: PRODUCT USED FOR UNKNOWN INDICATION
     Dosage: UNK
     Route: 065
     Dates: start: 2020
  2. CATAFLAM [Suspect]
     Active Substance: DICLOFENAC POTASSIUM
     Dosage: 50 MG IF NEEDED
     Route: 005
     Dates: start: 2020
  3. CATAFLAM [Suspect]
     Active Substance: DICLOFENAC POTASSIUM
     Indication: ANALGESIC THERAPY
     Dosage: UNK, PRN
     Route: 005

REACTIONS (2)
  - Product dose omission [Unknown]
  - Seizure [Unknown]

NARRATIVE: CASE EVENT DATE: 2020
